FAERS Safety Report 6397065-7 (Version None)
Quarter: 2009Q4

REPORT INFORMATION
  Report Type: 
  Country: None (occurrence: None)
  Receive Date: 20091012
  Receipt Date: 20091008
  Transmission Date: 20100525
  Serious: Yes (Other)
  Sender: FDA-Public Use
  Company Number: US-BAYER-200914406BCC

PATIENT
  Age: 68 Year
  Sex: Female
  Weight: 61 kg

DRUGS (4)
  1. ALEVE [Suspect]
     Indication: ARTHRITIS
     Dosage: TOTAL DAILY DOSE: 880 MG  UNIT DOSE: 220 MG
     Route: 048
     Dates: start: 19900101, end: 19990101
  2. PHOSLO [Concomitant]
     Route: 065
  3. NEPHROVITE [Concomitant]
     Indication: VITAMIN SUPPLEMENTATION
     Route: 065
  4. EPOGEN [Concomitant]
     Indication: ANAEMIA PROPHYLAXIS
     Route: 065

REACTIONS (1)
  - RENAL FAILURE CHRONIC [None]
